FAERS Safety Report 8775931 (Version 2)
Quarter: 2013Q2

REPORT INFORMATION
  Report Type: Report from Study
  Country: BR (occurrence: BR)
  Receive Date: 20120910
  Receipt Date: 20130513
  Transmission Date: 20140414
  Serious: Yes (Hospitalization, Other)
  Sender: FDA-Public Use
  Company Number: BR-ROCHE-718669

PATIENT
  Age: 31 Year
  Sex: Female
  Weight: 70 kg

DRUGS (24)
  1. RITUXIMAB [Suspect]
     Indication: SYSTEMIC LUPUS ERYTHEMATOSUS
     Dosage: DOSE: 1000 MG/ML?FORM: INFUSION
     Route: 042
     Dates: start: 20090701, end: 20120829
  2. RITUXIMAB [Suspect]
     Dosage: ROUTE: ENDOVENOUS. DOSE: 1000 MG/ML, STOP DATE: 4 NOV 2010
     Route: 042
  3. RITUXIMAB [Suspect]
     Route: 042
  4. RITUXIMAB [Suspect]
     Route: 042
  5. RITUXIMAB [Suspect]
     Route: 042
     Dates: start: 20110718, end: 201107
  6. RITUXIMAB [Suspect]
     Route: 042
  7. RITUXIMAB [Suspect]
     Route: 042
  8. SOLU-MEDROL [Suspect]
     Indication: PREMEDICATION
     Dosage: STOP DATE: 4 NOV 2010
     Route: 065
  9. PREDSIM [Concomitant]
     Indication: SYSTEMIC LUPUS ERYTHEMATOSUS
     Route: 065
  10. PREDSIM [Concomitant]
     Route: 065
  11. LASIX [Concomitant]
     Route: 065
  12. SOTACOR [Concomitant]
     Dosage: FREQUENCY:1/3 PER DAY.
     Route: 065
  13. AZATHIOPRINE [Concomitant]
     Dosage: DOSE:50 MG ,FREQUENCY:2 TABS/DAY
     Route: 065
  14. CALCIUM [Concomitant]
     Route: 065
  15. VITAMIN D [Concomitant]
     Dosage: DRUG NAME VITAMIN D
     Route: 065
  16. POLARAMINE [Concomitant]
     Indication: PREMEDICATION
     Dosage: STOP DATE: 4 NOV 2010
     Route: 065
  17. FENERGAN [Concomitant]
     Indication: PREMEDICATION
     Dosage: STOP DATE: 4 NOV 2010
     Route: 065
  18. ARADOIS [Concomitant]
     Route: 065
  19. PLAVIX [Concomitant]
     Route: 065
  20. PLASIL [Concomitant]
  21. DECADRON [Concomitant]
     Indication: PREMEDICATION
  22. ATENOLOL [Concomitant]
     Indication: PALPITATIONS
  23. INDAPAMIDE [Concomitant]
  24. FUROSEMIDE [Concomitant]
     Indication: SWELLING
     Route: 065

REACTIONS (30)
  - Pharyngitis [Not Recovered/Not Resolved]
  - Aggression [Unknown]
  - Depression [Unknown]
  - Cardiovascular disorder [Unknown]
  - Erythema [Unknown]
  - Local swelling [Unknown]
  - Ill-defined disorder [Recovered/Resolved]
  - Erythema [Recovering/Resolving]
  - Rhinitis [Unknown]
  - Migraine [Recovering/Resolving]
  - Pain [Unknown]
  - Decreased appetite [Unknown]
  - Malaise [Not Recovered/Not Resolved]
  - Pharyngeal inflammation [Unknown]
  - Blood pressure decreased [Unknown]
  - Nausea [Unknown]
  - Eating disorder [Unknown]
  - Nasopharyngitis [Not Recovered/Not Resolved]
  - Pharyngitis [Not Recovered/Not Resolved]
  - Abdominal pain [Not Recovered/Not Resolved]
  - Somnolence [Unknown]
  - Dyspnoea [Unknown]
  - Hypertension [Unknown]
  - Pallor [Unknown]
  - Headache [Unknown]
  - Confusional state [Not Recovered/Not Resolved]
  - Pulse pressure decreased [Unknown]
  - Sluggishness [Unknown]
  - Memory impairment [Unknown]
  - Infusion related reaction [Unknown]
